FAERS Safety Report 9980089 (Version 1)
Quarter: 2014Q1

REPORT INFORMATION
  Report Type: Report from Study
  Country: US (occurrence: US)
  Receive Date: 20140307
  Receipt Date: 20140307
  Transmission Date: 20141002
  Serious: Yes (Other)
  Sender: FDA-Public Use
  Company Number: US-ABBVIE-13P-163-1174293-00

PATIENT
  Age: 56 Year
  Sex: Male
  Weight: 95.34 kg

DRUGS (3)
  1. HUMIRA [Suspect]
     Indication: PSORIASIS
     Route: 058
     Dates: start: 201306, end: 201308
  2. BENAZAPRIL [Concomitant]
     Indication: HYPERTENSION
  3. LOVASTATIN [Concomitant]
     Indication: BLOOD CHOLESTEROL INCREASED

REACTIONS (6)
  - Nephrolithiasis [Recovered/Resolved]
  - Hepatic cyst [Not Recovered/Not Resolved]
  - Lung disorder [Unknown]
  - Infection [Unknown]
  - Abdominal pain upper [Recovered/Resolved]
  - Diverticulitis [Unknown]
